APPROVED DRUG PRODUCT: FLUTICASONE PROPIONATE
Active Ingredient: FLUTICASONE PROPIONATE
Strength: 0.005%
Dosage Form/Route: OINTMENT;TOPICAL
Application: A077145 | Product #001
Applicant: TARO PHARMACEUTICAL INDUSTRIES LTD
Approved: Jun 14, 2005 | RLD: No | RS: No | Type: DISCN